FAERS Safety Report 6315943-1 (Version None)
Quarter: 2009Q3

REPORT INFORMATION
  Report Type: 
  Country: None (occurrence: None)
  Receive Date: 20090820
  Receipt Date: 20080806
  Transmission Date: 20100115
  Serious: No
  Sender: FDA-Public Use
  Company Number: US-KINGPHARMUSA00001-K200800935

PATIENT
  Sex: Female

DRUGS (2)
  1. CYTOMEL [Suspect]
  2. LEVOXYL [Suspect]

REACTIONS (4)
  - ERYTHEMA [None]
  - GENERALISED ERYTHEMA [None]
  - PRURITUS [None]
  - PRURITUS GENERALISED [None]
